FAERS Safety Report 23630637 (Version 3)
Quarter: 2024Q2

REPORT INFORMATION
  Report Type: Spontaneous
  Country: US (occurrence: US)
  Receive Date: 20240314
  Receipt Date: 20240506
  Transmission Date: 20240716
  Serious: Yes (Hospitalization, Other)
  Sender: FDA-Public Use
  Company Number: US-002147023-NVSC2024US055588

PATIENT

DRUGS (33)
  1. PLUVICTO [Suspect]
     Active Substance: LUTETIUM LU-177 VIPIVOTIDE TETRAXETAN
     Indication: Prostate cancer
     Dosage: UNK (Q6W)
     Route: 042
     Dates: start: 20230712, end: 20240313
  2. XGEVA [Concomitant]
     Active Substance: DENOSUMAB
     Indication: Product used for unknown indication
     Dosage: 120 MG (28 DAYS)
     Route: 065
     Dates: start: 20240313, end: 20240313
  3. XGEVA [Concomitant]
     Active Substance: DENOSUMAB
     Dosage: 120 MG (28 DAYS)
     Route: 065
     Dates: start: 20230706
  4. XGEVA [Concomitant]
     Active Substance: DENOSUMAB
     Dosage: 120 MG (28 DAYS)
     Route: 065
     Dates: start: 20230323, end: 20240110
  5. LUPRON [Concomitant]
     Active Substance: LEUPROLIDE ACETATE
     Indication: Product used for unknown indication
     Dosage: 45 MG (Q 6 MONTHS)
     Route: 065
     Dates: start: 20240214
  6. ABIRATERONE [Concomitant]
     Active Substance: ABIRATERONE
     Indication: Product used for unknown indication
     Dosage: 120 MG, TIW (TAKE 4 TABS BY MOUTH A DAY.)
     Route: 048
     Dates: start: 20220605
  7. ABIRATERONE [Concomitant]
     Active Substance: ABIRATERONE
     Dosage: 120 MG, TIW (TAKE 4 TABS BY MOUTH A DAY.)
     Route: 048
     Dates: start: 20220706
  8. ABIRATERONE [Concomitant]
     Active Substance: ABIRATERONE
     Dosage: 120 MG, TIW (TAKE 4 TABS BY MOUTH A DAY.)
     Route: 048
     Dates: start: 20221118
  9. ALBUTEROL SULFATE [Concomitant]
     Active Substance: ALBUTEROL SULFATE
     Indication: Product used for unknown indication
     Dosage: UNK
     Route: 065
     Dates: start: 20230519
  10. ASPIRIN [Concomitant]
     Active Substance: ASPIRIN
     Indication: Product used for unknown indication
     Dosage: UNK, QD
     Route: 065
  11. CYANOCOBALAMIN [Concomitant]
     Active Substance: CYANOCOBALAMIN
     Indication: Product used for unknown indication
     Dosage: UNK, QD
     Route: 048
  12. DEGARELIX [Concomitant]
     Active Substance: DEGARELIX
     Indication: Product used for unknown indication
     Dosage: UNK (Q 6 MONTH)
     Route: 058
  13. ELIGARD [Concomitant]
     Active Substance: LEUPROLIDE ACETATE
     Indication: Product used for unknown indication
     Dosage: 45 MG (EVERY 6 MONTHS)
     Route: 058
     Dates: start: 20240205
  14. ELIGARD [Concomitant]
     Active Substance: LEUPROLIDE ACETATE
     Dosage: 5 MG, Q12H
     Route: 058
     Dates: start: 20210401
  15. FOLIC ACID [Concomitant]
     Active Substance: FOLIC ACID
     Indication: Product used for unknown indication
     Dosage: UNK
     Route: 065
  16. LISINOPRIL [Concomitant]
     Active Substance: LISINOPRIL
     Indication: Product used for unknown indication
     Dosage: 10 MG
     Route: 048
     Dates: start: 20200723
  17. LISINOPRIL [Concomitant]
     Active Substance: LISINOPRIL
     Dosage: 5 MG
     Route: 048
     Dates: start: 20240313
  18. METOPROLOL TARTRATE [Concomitant]
     Active Substance: METOPROLOL TARTRATE
     Indication: Product used for unknown indication
     Dosage: UNK, BID
     Route: 048
  19. ONDANSETRON [Concomitant]
     Active Substance: ONDANSETRON
     Indication: Product used for unknown indication
     Dosage: 8 MG (DISSOLVE ONE TABLET UNDER THE TONGUE EVERY HOURS AS NEEDED FOR NAUSEA)
     Route: 048
     Dates: start: 20230323
  20. ONDANSETRON [Concomitant]
     Active Substance: ONDANSETRON
     Dosage: 8 MG (DISSOLVE ONE TABLET UNDER THE TONGUE EVERY HOURS AS NEEDED FOR NAUSEA)
     Route: 048
     Dates: start: 20230801
  21. OXYCODONE [Concomitant]
     Active Substance: OXYCODONE\OXYCODONE HYDROCHLORIDE
     Indication: Product used for unknown indication
     Dosage: 5 MG, BID
     Route: 048
     Dates: start: 20240313
  22. WARFARIN [Concomitant]
     Active Substance: WARFARIN
     Indication: Product used for unknown indication
     Dosage: 1 MG, QD (HALF TABLET)
     Route: 065
     Dates: start: 20210701
  23. WARFARIN [Concomitant]
     Active Substance: WARFARIN
     Dosage: 5 MG, QD (ONE TABLET)
     Route: 065
     Dates: start: 20200723
  24. PREDNISONE [Concomitant]
     Active Substance: PREDNISONE
     Indication: Product used for unknown indication
     Dosage: 20 MG, QD
     Route: 065
     Dates: start: 20240313
  25. PREDNISONE [Concomitant]
     Active Substance: PREDNISONE
     Dosage: 5 MG, BID
     Route: 065
     Dates: start: 20220605
  26. PREDNISONE [Concomitant]
     Active Substance: PREDNISONE
     Dosage: 5 MG, BID
     Route: 065
     Dates: start: 20220708
  27. PREDNISONE [Concomitant]
     Active Substance: PREDNISONE
     Dosage: 5 MG, BID
     Route: 065
     Dates: start: 20220922
  28. PREDNISONE [Concomitant]
     Active Substance: PREDNISONE
     Dosage: 5 MG, BID
     Route: 065
     Dates: start: 20221228
  29. PREDNISONE [Concomitant]
     Active Substance: PREDNISONE
     Dosage: 5 MG, BID
     Route: 065
     Dates: start: 20230329
  30. PREDNISONE [Concomitant]
     Active Substance: PREDNISONE
     Dosage: 5 MG, BID
     Route: 065
     Dates: start: 20230426
  31. PREDNISONE [Concomitant]
     Active Substance: PREDNISONE
     Dosage: 5 MG, BID
     Route: 065
     Dates: start: 20230531
  32. SERTRALINE [Concomitant]
     Active Substance: SERTRALINE HYDROCHLORIDE
     Indication: Product used for unknown indication
     Dosage: UNK, QD
     Route: 065
     Dates: start: 20240313
  33. TAMSULOSIN [Concomitant]
     Active Substance: TAMSULOSIN
     Indication: Product used for unknown indication
     Dosage: 0.4 MG
     Route: 065
     Dates: start: 20200723

REACTIONS (1)
  - General physical health deterioration [Not Recovered/Not Resolved]

NARRATIVE: CASE EVENT DATE: 20240313
